FAERS Safety Report 7794960-9 (Version None)
Quarter: 2011Q3

REPORT INFORMATION
  Report Type: 
  Country: None (occurrence: None)
  Receive Date: 20110930
  Receipt Date: 20110920
  Transmission Date: 20111222
  Serious: Yes (Other)
  Sender: FDA-Public Use
  Company Number: GER/GER/11/0021333

PATIENT
  Sex: Male
  Weight: 100 kg

DRUGS (2)
  1. CELEBREX [Suspect]
     Indication: PAIN
     Dosage: 200 MG, 1 IN 1 D, ORAL
     Route: 048
     Dates: start: 20110204, end: 20110212
  2. IBUPROFEN [Suspect]
     Indication: PRODUCT USED FOR UNKNOWN INDICATION
     Dosage: 600 MG, AS REQUIRED

REACTIONS (4)
  - DIZZINESS [None]
  - CONFUSIONAL STATE [None]
  - FATIGUE [None]
  - DISORIENTATION [None]
